FAERS Safety Report 12879974 (Version 1)
Quarter: 2016Q4

REPORT INFORMATION
  Report Type: Report from Study
  Country: DK (occurrence: DK)
  Receive Date: 20161025
  Receipt Date: 20161025
  Transmission Date: 20170207
  Serious: Yes (Other)
  Sender: FDA-Public Use
  Company Number: DK-ACCORD-045044

PATIENT
  Age: 28 Year
  Sex: Female

DRUGS (4)
  1. LITHIUM. [Interacting]
     Active Substance: LITHIUM
     Indication: BIPOLAR DISORDER
     Route: 048
  2. PALIPERIDONE/PALIPERIDONE PALMITATE [Interacting]
     Active Substance: PALIPERIDONE
     Indication: SCHIZOPHRENIA
     Route: 030
  3. QUETIAPINE. [Suspect]
     Active Substance: QUETIAPINE
     Indication: BIPOLAR DISORDER
     Route: 048
  4. LEVOMEPROMAZINE [Interacting]
     Active Substance: LEVOMEPROMAZINE
     Indication: SCHIZOPHRENIA
     Route: 048

REACTIONS (3)
  - Potentiating drug interaction [Unknown]
  - Drug prescribing error [None]
  - Intercepted medication error [Unknown]
